FAERS Safety Report 13074363 (Version 1)
Quarter: 2016Q4

REPORT INFORMATION
  Report Type: Spontaneous
  Country: US (occurrence: US)
  Receive Date: 20161230
  Receipt Date: 20161230
  Transmission Date: 20170207
  Serious: No
  Sender: FDA-Public Use
  Company Number: US-ASTRAZENECA-2016SF37337

PATIENT
  Sex: Female

DRUGS (1)
  1. RHINOCORT ALLERGY [Suspect]
     Active Substance: BUDESONIDE
     Indication: MULTIPLE ALLERGIES
     Route: 045

REACTIONS (3)
  - Epistaxis [Recovering/Resolving]
  - Scab [Recovering/Resolving]
  - Circumstance or information capable of leading to medication error [Unknown]
